FAERS Safety Report 19827443 (Version 2)
Quarter: 2022Q3

REPORT INFORMATION
  Report Type: Spontaneous
  Country: CH (occurrence: CH)
  Receive Date: 20210914
  Receipt Date: 20220712
  Transmission Date: 20221027
  Serious: Yes (Other)
  Sender: FDA-Public Use
  Company Number: CH-GSKCCFEMEA-CASE-01300122_AE-49300

PATIENT

DRUGS (2)
  1. WELLBUTRIN [Suspect]
     Active Substance: BUPROPION HYDROCHLORIDE
     Indication: Product used for unknown indication
     Dosage: 150 MG, QD
  2. WELLBUTRIN [Suspect]
     Active Substance: BUPROPION HYDROCHLORIDE
     Dosage: 300 MG, QD

REACTIONS (8)
  - Serotonin syndrome [Unknown]
  - Pyrexia [Unknown]
  - Feeling hot [Unknown]
  - Dizziness [Unknown]
  - Palpitations [Unknown]
  - Mydriasis [Unknown]
  - Anxiety [Unknown]
  - Therapeutic product effect incomplete [Unknown]
